FAERS Safety Report 20835760 (Version 1)
Quarter: 2022Q2

REPORT INFORMATION
  Report Type: Spontaneous
  Country: US (occurrence: US)
  Receive Date: 20220516
  Receipt Date: 20220516
  Transmission Date: 20220720
  Serious: No
  Sender: FDA-Public Use
  Company Number: US-PFIZER INC-202200479895

PATIENT
  Age: 69 Year
  Sex: Female
  Weight: 107.6 kg

DRUGS (4)
  1. ONDANSETRON [Suspect]
     Active Substance: ONDANSETRON
     Indication: Pyrexia
     Dosage: UNK
     Dates: start: 20220309
  2. MEPERIDINE HYDROCHLORIDE [Suspect]
     Active Substance: MEPERIDINE HYDROCHLORIDE
     Indication: Pyrexia
     Dosage: UNK
     Dates: start: 20220309
  3. APAP [Suspect]
     Active Substance: ACETAMINOPHEN
     Indication: Pyrexia
     Dosage: UNK
     Dates: start: 20220309
  4. FAMOTIDINE [Suspect]
     Active Substance: FAMOTIDINE
     Indication: Pyrexia
     Dosage: UNK
     Dates: start: 20220309

REACTIONS (2)
  - Off label use [Unknown]
  - Drug ineffective for unapproved indication [Unknown]

NARRATIVE: CASE EVENT DATE: 20220309
